FAERS Safety Report 19183935 (Version 1)
Quarter: 2021Q2

REPORT INFORMATION
  Report Type: Spontaneous
  Country: US (occurrence: US)
  Receive Date: 20210427
  Receipt Date: 20210427
  Transmission Date: 20210717
  Serious: No
  Sender: FDA-Public Use
  Company Number: US-ALLERGAN-2017307US

PATIENT
  Age: 17 Year
  Sex: Female

DRUGS (1)
  1. TAYTULLA [Suspect]
     Active Substance: ETHINYL ESTRADIOL\NORETHINDRONE ACETATE
     Indication: CONTRACEPTION
     Dosage: UNK
     Route: 048
     Dates: start: 202003, end: 202004

REACTIONS (6)
  - Constipation [Recovered/Resolved]
  - Diarrhoea [Recovered/Resolved]
  - Dysmenorrhoea [Recovered/Resolved]
  - Dyspepsia [Recovered/Resolved]
  - Menstrual disorder [Recovered/Resolved]
  - Abdominal pain lower [Recovered/Resolved]

NARRATIVE: CASE EVENT DATE: 202004
